FAERS Safety Report 24669850 (Version 4)
Quarter: 2025Q3

REPORT INFORMATION
  Report Type: Spontaneous
  Country: US (occurrence: US)
  Receive Date: 20241127
  Receipt Date: 20250819
  Transmission Date: 20251021
  Serious: Yes (Other)
  Sender: PFIZER
  Company Number: US-PFIZER INC-PV202400152435

PATIENT
  Age: 81 Year
  Sex: Female

DRUGS (6)
  1. IBRANCE [Suspect]
     Active Substance: PALBOCICLIB
     Indication: Breast cancer metastatic
     Route: 048
     Dates: start: 20200124
  2. IBRANCE [Suspect]
     Active Substance: PALBOCICLIB
     Indication: Breast cancer female
     Route: 048
     Dates: start: 20201219
  3. IBRANCE [Suspect]
     Active Substance: PALBOCICLIB
     Route: 048
     Dates: start: 20201224, end: 202212
  4. IBRANCE [Suspect]
     Active Substance: PALBOCICLIB
     Route: 048
  5. XGEVA [Suspect]
     Active Substance: DENOSUMAB
     Dosage: EVERY THREE MONTHS
     Dates: start: 202001
  6. LETROZOLE [Suspect]
     Active Substance: LETROZOLE
     Dates: start: 201912

REACTIONS (16)
  - Chronic kidney disease [Unknown]
  - Atrial fibrillation [Unknown]
  - Hypertension [Recovering/Resolving]
  - Microcytic anaemia [Unknown]
  - Oedema [Unknown]
  - Nasopharyngitis [Recovering/Resolving]
  - Rhinovirus infection [Recovering/Resolving]
  - Nasal congestion [Recovering/Resolving]
  - Fatigue [Recovering/Resolving]
  - Anaemia [Recovering/Resolving]
  - Cough [Recovering/Resolving]
  - Anxiety [Unknown]
  - Dyspnoea exertional [Not Recovered/Not Resolved]
  - Sinusitis [Unknown]
  - Arthralgia [Not Recovered/Not Resolved]
  - Mobility decreased [Unknown]
